FAERS Safety Report 6642148-7 (Version None)
Quarter: 2010Q1

REPORT INFORMATION
  Report Type: 
  Country: None (occurrence: None)
  Receive Date: 20100319
  Receipt Date: 20100308
  Transmission Date: 20100710
  Serious: Yes (Hospitalization)
  Sender: FDA-Public Use
  Company Number: BE-BRISTOL-MYERS SQUIBB COMPANY-15008451

PATIENT
  Age: 86 Year
  Sex: Male
  Weight: 72 kg

DRUGS (6)
  1. SOTALOL HCL [Suspect]
  2. METFORMIN HCL [Suspect]
  3. PRAVASTATIN [Suspect]
  4. NISOLDIPINE [Suspect]
  5. BUMETANIDE [Suspect]
  6. OMEPRAZOLE [Concomitant]

REACTIONS (4)
  - GASTROENTERITIS [None]
  - LOSS OF CONSCIOUSNESS [None]
  - RENAL FAILURE ACUTE [None]
  - TORSADE DE POINTES [None]
